FAERS Safety Report 6759085-X (Version None)
Quarter: 2010Q2

REPORT INFORMATION
  Report Type: 
  Country: None (occurrence: None)
  Receive Date: 20100607
  Receipt Date: 20100601
  Transmission Date: 20101027
  Serious: Yes (Hospitalization, Other)
  Sender: FDA-Public Use
  Company Number: US-BAYER-201016116BCC

PATIENT
  Age: 66 Year
  Sex: Male

DRUGS (2)
  1. ASPIRIN [Suspect]
     Indication: DRUG USE FOR UNKNOWN INDICATION
     Route: 048
     Dates: start: 20030501
  2. PLAVIX [Suspect]
     Indication: STENT PLACEMENT
     Dosage: TOTAL DAILY DOSE: 75 MG  UNIT DOSE: 75 MG
     Route: 048
     Dates: start: 20030501

REACTIONS (10)
  - BLOOD AMYLASE INCREASED [None]
  - CARDIAC OPERATION [None]
  - COLLAPSE OF LUNG [None]
  - DEVICE OCCLUSION [None]
  - LIPASE INCREASED [None]
  - NECK PAIN [None]
  - PAIN IN EXTREMITY [None]
  - PANCREATITIS [None]
  - POST PROCEDURAL HAEMORRHAGE [None]
  - STENT PLACEMENT [None]
